FAERS Safety Report 6284077-7 (Version None)
Quarter: 2009Q3

REPORT INFORMATION
  Report Type: 
  Country: None (occurrence: None)
  Receive Date: 20090722
  Receipt Date: 20090714
  Transmission Date: 20100115
  Serious: Yes (Other)
  Sender: FDA-Public Use
  Company Number: 2009PL000250

PATIENT
  Age: 39 Year
  Sex: Female
  Weight: 61.2356 kg

DRUGS (5)
  1. IMURAN [Suspect]
     Indication: CROHN'S DISEASE
     Dosage: 50 MG; QD;
  2. REMICADE [Suspect]
     Indication: CROHN'S DISEASE
     Dosage: 7.5 MG/KG; Q6-8WKS; IV
     Route: 042
     Dates: start: 20081215
  3. ASACOL [Concomitant]
  4. ZANTAC /00550802/ [Concomitant]
  5. FOLATE [Concomitant]

REACTIONS (1)
  - BREAST CANCER [None]
